FAERS Safety Report 4931857-3 (Version None)
Quarter: 2006Q1

REPORT INFORMATION
  Report Type: 
  Country: None (occurrence: None)
  Receive Date: 20060303
  Receipt Date: 20050726
  Transmission Date: 20060701
  Serious: Yes (Hospitalization)
  Sender: FDA-Public Use
  Company Number: US-MERCK-0507USA04128

PATIENT
  Age: 53 Year
  Sex: Female

DRUGS (15)
  1. VIOXX [Suspect]
     Indication: BACK PAIN
     Route: 048
     Dates: start: 20040510, end: 20040912
  2. ACTOS [Concomitant]
     Route: 065
  3. HYDROCHLOROTHIAZIDE [Concomitant]
     Route: 065
  4. ASPIRIN [Concomitant]
     Route: 065
  5. ACIPHEX [Concomitant]
     Route: 065
  6. PRAVACHOL [Concomitant]
     Route: 065
  7. CLONIDINE [Concomitant]
     Route: 065
  8. TOPROL-XL [Concomitant]
     Route: 065
  9. NEURONTIN [Concomitant]
     Indication: PAIN
     Route: 065
  10. STARLIX [Concomitant]
     Route: 065
  11. LEXAPRO [Concomitant]
     Route: 065
  12. PLAVIX [Concomitant]
     Route: 065
  13. PAXIL CR [Concomitant]
     Route: 065
  14. MOBIC [Concomitant]
     Route: 065
  15. LORAZEPAM [Concomitant]
     Route: 065

REACTIONS (8)
  - ANXIETY [None]
  - CHRONIC OBSTRUCTIVE PULMONARY DISEASE [None]
  - CORONARY ARTERY DISEASE [None]
  - HYPERTENSION [None]
  - LOBAR PNEUMONIA [None]
  - MENTAL DISORDER [None]
  - PAIN [None]
  - PULMONARY EMBOLISM [None]
